FAERS Safety Report 10101889 (Version 1)
Quarter: 2014Q2

REPORT INFORMATION
  Report Type: Spontaneous
  Country: US (occurrence: None)
  Receive Date: 20140423
  Receipt Date: 20140423
  Transmission Date: 20141212
  Serious: No
  Sender: FDA-Public Use
  Company Number: None

PATIENT
  Age: 72 Year
  Sex: Female
  Weight: 95.26 kg

DRUGS (13)
  1. HYDROMORPHONE HCL [Suspect]
     Indication: PROCEDURAL PAIN
     Route: 048
     Dates: start: 20140227, end: 20140303
  2. LANTUS [Concomitant]
  3. NOVALOG [Concomitant]
  4. CLOPIDOGREL [Suspect]
  5. SIMVASTATIN [Concomitant]
  6. LISINOPRIL [Concomitant]
  7. PROAIR HFA [Concomitant]
  8. VITAMIN D [Concomitant]
  9. QH CO-Q10 [Concomitant]
  10. B-12 [Concomitant]
  11. CLA LINOLEIC ACID [Concomitant]
  12. PRICKLY PEAR [Concomitant]
  13. ASHWAGANDHA [Concomitant]

REACTIONS (2)
  - Rash [None]
  - Pruritus [None]
